FAERS Safety Report 4761017-0 (Version None)
Quarter: 2005Q3

REPORT INFORMATION
  Report Type: 
  Country: None (occurrence: None)
  Receive Date: 20050901
  Receipt Date: 20050822
  Transmission Date: 20060218
  Serious: Yes (Death)
  Sender: FDA-Public Use
  Company Number: 2005-03104

PATIENT
  Age: 42 Year
  Sex: Female

DRUGS (5)
  1. TRAZODONE HCL [Suspect]
     Indication: SOMNOLENCE
     Dosage: 50 MG, ORAL
     Route: 048
  2. CELEXA [Suspect]
     Indication: TRICHOTILLOMANIA
     Dosage: 100 MG, DAILY, ORAL
     Route: 048
  3. TOPAMAX [Suspect]
  4. TYLENOL [Suspect]
     Indication: HEADACHE
  5. NALTREXONE HCL [Concomitant]

REACTIONS (5)
  - ACCIDENTAL OVERDOSE [None]
  - DRUG TOXICITY [None]
  - METABOLIC ACIDOSIS [None]
  - MULTIPLE DRUG OVERDOSE [None]
  - TREATMENT NONCOMPLIANCE [None]
